FAERS Safety Report 9023664 (Version 2)
Quarter: 2013Q1

REPORT INFORMATION
  Report Type: Report from Study
  Country: US (occurrence: US)
  Receive Date: 20130121
  Receipt Date: 20130123
  Transmission Date: 20140127
  Serious: Yes (Death)
  Sender: FDA-Public Use
  Company Number: US-ASTELLAS-2013US000643

PATIENT
  Sex: Female
  Weight: 67 kg

DRUGS (4)
  1. ERLOTINIB TABLET [Suspect]
     Indication: LUNG NEOPLASM MALIGNANT
     Dosage: 150 MG, UID/QD
     Route: 048
     Dates: start: 20120920, end: 201212
  2. KEPPRA [Concomitant]
     Indication: CONVULSION
     Dosage: 500 MG, BID
     Route: 065
     Dates: start: 20130103
  3. DECADRON                           /00016001/ [Concomitant]
     Indication: METASTASES TO CENTRAL NERVOUS SYSTEM
     Dosage: 4 MEQ/ML, TID
     Route: 048
     Dates: start: 20130103
  4. FENTANYL [Concomitant]
     Indication: PAIN
     Dosage: UNK
     Route: 065
     Dates: end: 20130104

REACTIONS (1)
  - Lung adenocarcinoma metastatic [Fatal]
